FAERS Safety Report 9927788 (Version 1)
Quarter: 2014Q1

REPORT INFORMATION
  Report Type: Spontaneous
  Country: US (occurrence: US)
  Receive Date: 20140227
  Receipt Date: 20140227
  Transmission Date: 20141002
  Serious: Yes (Other)
  Sender: FDA-Public Use
  Company Number: US-AMGEN-USASP2014012344

PATIENT
  Age: 78 Year
  Sex: Female

DRUGS (15)
  1. PROLIA [Suspect]
     Indication: OSTEOPOROSIS POSTMENOPAUSAL
     Dosage: UNK UNK, Q6MO
     Route: 065
     Dates: start: 20130924
  2. ENBREL [Suspect]
     Indication: RHEUMATOID ARTHRITIS
     Dosage: UNK
     Route: 065
     Dates: start: 20131119
  3. METHOTREXATE [Concomitant]
     Dosage: 2.5 MG, UNK
     Route: 065
  4. PREDNISONE [Concomitant]
     Dosage: 3 MG, QD
     Route: 065
  5. FOLIC ACID [Concomitant]
     Dosage: 2 MG, QD
     Route: 065
  6. LISINOPRIL [Concomitant]
     Dosage: 2.5 MG, QD
     Route: 065
  7. ATENOLOL [Concomitant]
     Dosage: 50 MG, QD
     Route: 065
  8. BUPROPION [Concomitant]
     Dosage: 150 MG, QD
     Route: 065
  9. PANTOPRAZOLE [Concomitant]
     Dosage: 40 MG, UNK
     Route: 065
  10. XANAX [Concomitant]
     Dosage: 0.25 MG, QD( BEFORE BEDTIME)
     Route: 065
  11. SIMVASTATIN [Concomitant]
     Dosage: 40 MG, QD
     Route: 065
  12. BABY ASPIRIN [Concomitant]
     Dosage: UNK UNK, QD 2
     Route: 065
  13. VITAMIN C                          /00008001/ [Concomitant]
     Dosage: 500 MG, QD
     Route: 065
  14. VIACTIV                            /00751501/ [Concomitant]
     Dosage: 500 MG, UNK
     Route: 065
  15. VITAMIN D                          /00107901/ [Concomitant]

REACTIONS (7)
  - Cystitis [Not Recovered/Not Resolved]
  - Tendon rupture [Unknown]
  - Abdominal pain lower [Unknown]
  - Groin pain [Unknown]
  - Throat tightness [Unknown]
  - Swollen tongue [Unknown]
  - Eye disorder [Unknown]
